FAERS Safety Report 8288229-6 (Version None)
Quarter: 2012Q2

REPORT INFORMATION
  Report Type: 
  Country: None (occurrence: None)
  Receive Date: 20120416
  Receipt Date: 20120405
  Transmission Date: 20120825
  Serious: Yes (Hospitalization)
  Sender: FDA-Public Use
  Company Number: JP-AMGEN-JPNCT2012023035

PATIENT
  Age: 39 Year
  Sex: Female
  Weight: 71 kg

DRUGS (9)
  1. KETOPROFEN [Concomitant]
     Indication: RHEUMATOID ARTHRITIS
     Dosage: UNK MG, UNK
     Route: 062
  2. LOXONIN [Concomitant]
     Indication: RHEUMATOID ARTHRITIS
     Dosage: 60 MG, UNK
     Route: 048
  3. METHOTREXATE [Concomitant]
     Indication: RHEUMATOID ARTHRITIS
     Dosage: UNK
     Route: 048
  4. BLINDED DENOSUMAB [Suspect]
     Indication: RHEUMATOID ARTHRITIS
     Route: 058
     Dates: start: 20110530, end: 20120322
  5. PLACEBO [Suspect]
     Indication: RHEUMATOID ARTHRITIS
     Route: 058
     Dates: start: 20110530, end: 20120322
  6. SELBEX [Concomitant]
     Indication: GASTRITIS PROPHYLAXIS
     Dosage: 50 MG, UNK
     Route: 048
  7. FOLIAMIN [Concomitant]
     Indication: PROPHYLAXIS
     Dosage: UNK
     Route: 048
  8. RIMATIL [Concomitant]
     Indication: RHEUMATOID ARTHRITIS
     Dosage: UNK
     Route: 048
  9. CALCIUM CARBONATE [Concomitant]
     Indication: PRODUCT USED FOR UNKNOWN INDICATION
     Dosage: UNK
     Route: 048

REACTIONS (1)
  - CROHN'S DISEASE [None]
